FAERS Safety Report 22320687 (Version 3)
Quarter: 2023Q2

REPORT INFORMATION
  Report Type: Report from Study
  Country: NZ (occurrence: NZ)
  Receive Date: 20230515
  Receipt Date: 20230531
  Transmission Date: 20230722
  Serious: Yes (Hospitalization)
  Sender: FDA-Public Use
  Company Number: AU-002147023-NVSC2023NZ110201

PATIENT
  Sex: Male

DRUGS (1)
  1. COSENTYX [Suspect]
     Active Substance: SECUKINUMAB
     Indication: Psoriasis
     Dosage: UNK (LOADING DOSE)
     Route: 058
     Dates: start: 20230408

REACTIONS (4)
  - Pneumonia [Unknown]
  - Fatigue [Not Recovered/Not Resolved]
  - Device leakage [Unknown]
  - Product storage error [Unknown]
